FAERS Safety Report 15257717 (Version 3)
Quarter: 2018Q4

REPORT INFORMATION
  Report Type: Spontaneous
  Country: IT (occurrence: IT)
  Receive Date: 20180808
  Receipt Date: 20180910
  Transmission Date: 20190204
  Serious: Yes (Other)
  Sender: FDA-Public Use
  Company Number: PHHY2018IT015845

PATIENT
  Age: 56 Year
  Sex: Female

DRUGS (6)
  1. DURACEF (CEFADROXIL) [Suspect]
     Active Substance: CEFADROXIL
     Indication: PRODUCT USED FOR UNKNOWN INDICATION
     Dosage: 2MG/ML IN 0.9% SODIUM CHLORIDE.
     Route: 023
  2. AMPICILLIN [Suspect]
     Active Substance: AMPICILLIN
     Indication: PRODUCT USED FOR UNKNOWN INDICATION
     Dosage: UNK
     Route: 065
  3. KEFORAL [Suspect]
     Active Substance: CEPHALEXIN
     Indication: PRODUCT USED FOR UNKNOWN INDICATION
     Dosage: 2MG/ML IN 0.9% SODIUM CHLORIDE.
     Route: 023
  4. BACAMPICILLIN [Suspect]
     Active Substance: BACAMPICILLIN
     Indication: PRODUCT USED FOR UNKNOWN INDICATION
     Dosage: UNK
     Route: 065
  5. AMOXICILLIN. [Suspect]
     Active Substance: AMOXICILLIN
     Indication: PRODUCT USED FOR UNKNOWN INDICATION
     Dosage: UNK
     Route: 065
  6. PANACEF [Suspect]
     Active Substance: CEFACLOR
     Indication: PRODUCT USED FOR UNKNOWN INDICATION
     Dosage: 2 MG/ML, UNK (0.9% SODIUM)
     Route: 023

REACTIONS (5)
  - Rash maculo-papular [Unknown]
  - Erythema [Unknown]
  - Oedema [Unknown]
  - Therapeutic product cross-reactivity [Unknown]
  - Type IV hypersensitivity reaction [Unknown]
